FAERS Safety Report 18919216 (Version 6)
Quarter: 2023Q1

REPORT INFORMATION
  Report Type: Report from Study
  Country: DE (occurrence: DE)
  Receive Date: 20210220
  Receipt Date: 20230318
  Transmission Date: 20230417
  Serious: Yes (Other)
  Sender: FDA-Public Use
  Company Number: NVSC2021DE040067

PATIENT
  Age: 77 Year
  Sex: Female
  Weight: 61 kg

DRUGS (2)
  1. DABRAFENIB [Suspect]
     Active Substance: DABRAFENIB
     Indication: Malignant melanoma
     Dosage: 300 MG
     Route: 048
     Dates: start: 20200715, end: 20200816
  2. TRAMETINIB [Suspect]
     Active Substance: TRAMETINIB
     Indication: Malignant melanoma
     Dosage: 2 MG
     Route: 048
     Dates: start: 20200715, end: 20200816

REACTIONS (11)
  - Hepatitis [Recovered/Resolved]
  - Toxicity to various agents [Recovered/Resolved]
  - Fatigue [Unknown]
  - Weight decreased [Unknown]
  - Chills [Unknown]
  - Pyrexia [Recovering/Resolving]
  - Vomiting [Unknown]
  - Headache [Unknown]
  - Illness [Unknown]
  - Asthenia [Unknown]
  - Chromaturia [Unknown]

NARRATIVE: CASE EVENT DATE: 20200818
